FAERS Safety Report 19607356 (Version 1)
Quarter: 2021Q3

REPORT INFORMATION
  Report Type: Spontaneous
  Country: NL (occurrence: NL)
  Receive Date: 20210726
  Receipt Date: 20210726
  Transmission Date: 20211014
  Serious: Yes (Hospitalization)
  Sender: FDA-Public Use
  Company Number: NL-TEVA-2021-NL-1935389

PATIENT
  Sex: Female
  Weight: 70 kg

DRUGS (2)
  1. PAROXETINE TABLET 20MG / BRAND NAME NOT SPECIFIED [Suspect]
     Active Substance: PAROXETINE
     Indication: ANXIETY
     Dosage: FIRST 1 X A DAY 1 PIECE, LATER 1 X A DAY HALF A PIECE, 1 DF, THERAPY END DATE: ASKU
     Route: 065
     Dates: start: 201507
  2. PAROXETINE TABLET 20MG / BRAND NAME NOT SPECIFIED [Suspect]
     Active Substance: PAROXETINE
     Indication: DEPRESSION

REACTIONS (3)
  - Suicidal ideation [Recovered/Resolved]
  - Suicide attempt [Recovered/Resolved]
  - Weight increased [Recovered/Resolved]
